FAERS Safety Report 15489885 (Version 1)
Quarter: 2018Q4

REPORT INFORMATION
  Report Type: Spontaneous
  Country: US (occurrence: US)
  Receive Date: 20181011
  Receipt Date: 20181011
  Transmission Date: 20190205
  Serious: No
  Sender: FDA-Public Use
  Company Number: US-PERRIGO-18US000318

PATIENT
  Age: 37 Year
  Sex: Female
  Weight: 133.79 kg

DRUGS (2)
  1. NICOTINE POLACRILEX [Suspect]
     Active Substance: NICOTINE
     Indication: SMOKING CESSATION THERAPY
     Dosage: TOTAL OF 28 MG IN 24 HOURS
     Route: 002
     Dates: start: 20180107, end: 20180107
  2. NICOTINE POLACRILEX [Suspect]
     Active Substance: NICOTINE
     Dosage: TOTAL OF 12 MG IN 24 HOURS
     Route: 002
     Dates: start: 20180108, end: 20180108

REACTIONS (4)
  - Pruritus [Recovered/Resolved]
  - Urticaria [Recovering/Resolving]
  - Hypersensitivity [Recovering/Resolving]
  - Paraesthesia [Recovered/Resolved]

NARRATIVE: CASE EVENT DATE: 20180107
